FAERS Safety Report 25408504 (Version 1)
Quarter: 2025Q2

REPORT INFORMATION
  Report Type: Spontaneous
  Country: US (occurrence: US)
  Receive Date: 20250606
  Receipt Date: 20250606
  Transmission Date: 20250716
  Serious: Yes (Hospitalization, Other)
  Sender: NOVARTIS
  Company Number: US-002147023-NVSC2025US088038

PATIENT
  Age: 69 Year
  Sex: Male
  Weight: 63 kg

DRUGS (5)
  1. PLUVICTO [Suspect]
     Active Substance: LUTETIUM LU-177 VIPIVOTIDE TETRAXETAN
     Indication: Prostate cancer metastatic
     Route: 042
     Dates: start: 20250409
  2. LEUPROLIDE [Concomitant]
     Active Substance: LEUPROLIDE
     Indication: Product used for unknown indication
     Route: 065
  3. KEPPRA [Concomitant]
     Active Substance: LEVETIRACETAM
     Indication: Product used for unknown indication
     Route: 065
  4. ZOMETA [Concomitant]
     Active Substance: ZOLEDRONIC ACID
     Indication: Product used for unknown indication
     Route: 065
  5. PREDNISONE [Concomitant]
     Active Substance: PREDNISONE
     Indication: Product used for unknown indication
     Dosage: 10 MG, QD
     Route: 065

REACTIONS (19)
  - Thrombocytopenia [Recovering/Resolving]
  - Subdural haematoma [Unknown]
  - Asthenia [Unknown]
  - Subdural haemorrhage [Unknown]
  - Hyponatraemia [Unknown]
  - Anaemia [Unknown]
  - Pancytopenia [Unknown]
  - Hypokalaemia [Recovering/Resolving]
  - Hypotension [Recovering/Resolving]
  - Prostate cancer metastatic [Unknown]
  - Hypophagia [Recovering/Resolving]
  - Depression [Unknown]
  - Insomnia [Unknown]
  - Anxiety [Unknown]
  - Fall [Unknown]
  - Head injury [Unknown]
  - Pancreatic mass [Unknown]
  - Malignant neoplasm progression [Unknown]
  - Inappropriate antidiuretic hormone secretion [Unknown]

NARRATIVE: CASE EVENT DATE: 20250505
